FAERS Safety Report 22103654 (Version 1)
Quarter: 2023Q1

REPORT INFORMATION
  Report Type: Spontaneous
  Country: CN (occurrence: None)
  Receive Date: 20230316
  Receipt Date: 20230316
  Transmission Date: 20230417
  Serious: Yes (Other)
  Sender: FDA-Public Use
  Company Number: 2023A059715

PATIENT
  Age: 64 Year
  Sex: Male
  Weight: 50 kg

DRUGS (2)
  1. IMFINZI [Suspect]
     Active Substance: DURVALUMAB
     Indication: Non-small cell lung cancer stage III
     Dosage: 500.0MG UNKNOWN
     Dates: start: 20210715
  2. IMFINZI [Suspect]
     Active Substance: DURVALUMAB
     Indication: Non-small cell lung cancer stage III
     Dosage: 500 MG/CYCLE UNKNOWN
     Dates: start: 20210729

REACTIONS (1)
  - COVID-19 pneumonia [Unknown]
